FAERS Safety Report 5746547-7 (Version None)
Quarter: 2008Q2

REPORT INFORMATION
  Report Type: 
  Country: None (occurrence: None)
  Receive Date: 20080522
  Receipt Date: 20080121
  Transmission Date: 20081010
  Serious: Yes (Other)
  Sender: FDA-Public Use
  Company Number: US-BRISTOL-MYERS SQUIBB COMPANY-14054159

PATIENT

DRUGS (1)
  1. CYCLOPHOSPHAMIDE [Suspect]
     Route: 065

REACTIONS (2)
  - INTERSTITIAL LUNG DISEASE [None]
  - PULMONARY FUNCTION TEST ABNORMAL [None]
